FAERS Safety Report 17785693 (Version 1)
Quarter: 2020Q2

REPORT INFORMATION
  Report Type: Spontaneous
  Country: US (occurrence: US)
  Receive Date: 20200514
  Receipt Date: 20200514
  Transmission Date: 20200714
  Serious: Yes (Hospitalization, Other)
  Sender: FDA-Public Use
  Company Number: US-ELI_LILLY_AND_COMPANY-US202005001985

PATIENT
  Age: 52 Year
  Sex: Male

DRUGS (2)
  1. HUMULIN 70/30 [Suspect]
     Active Substance: INSULIN HUMAN
     Indication: TYPE 2 DIABETES MELLITUS
     Dosage: 11 U, BID
     Route: 065
     Dates: start: 20200228
  2. HUMULIN 70/30 [Suspect]
     Active Substance: INSULIN HUMAN
     Dosage: 11 U, BID
     Route: 065

REACTIONS (8)
  - Thrombosis [Unknown]
  - Somnolence [Unknown]
  - Nasopharyngitis [Unknown]
  - Peripheral swelling [Unknown]
  - Visual impairment [Unknown]
  - Injury [Unknown]
  - Diabetic complication [Unknown]
  - Sensory loss [Unknown]

NARRATIVE: CASE EVENT DATE: 20200228
